FAERS Safety Report 15843931 (Version 2)
Quarter: 2019Q1

REPORT INFORMATION
  Report Type: Report from Study
  Country: IT (occurrence: IT)
  Receive Date: 20190118
  Receipt Date: 20190124
  Transmission Date: 20190417
  Serious: Yes (Other)
  Sender: FDA-Public Use
  Company Number: IT-PFIZER INC-2019022879

PATIENT
  Age: 4 Month
  Sex: Male

DRUGS (17)
  1. QUINIDINE [Interacting]
     Active Substance: QUINIDINE
     Dosage: 45 MG/KG, 1X/DAY (CURRENTLY MAINTAINED ON 45 MG/KG IN 4 DIVIDED DOSES)
     Route: 065
  2. POTASSIUM BROMIDE [Concomitant]
     Active Substance: POTASSIUM BROMIDE
     Indication: PARTIAL SEIZURES
     Dosage: UP TO 45 MG/KG/DAY
     Route: 065
  3. QUINIDINE [Interacting]
     Active Substance: QUINIDINE
     Dosage: 50 MG/KG, 1X/DAY (REDUCED DOSE AFTER INCREASED QT-INTERVAL; WAS LATER INCREASED TO 70 MG/KG DAILY)
     Route: 065
  4. QUINIDINE [Suspect]
     Active Substance: QUINIDINE
     Indication: PARTIAL SEIZURES
     Dosage: 35 MG/KG, 1X/DAY (AFTER THE SECOND INCREASE TO 50MG/KG, REDUCED TO 35MG/KG)
     Route: 065
  5. QUINIDINE [Interacting]
     Active Substance: QUINIDINE
     Dosage: 70 MG/KG (AFTER THE DOSE INCREASE, IT WAS AGAIN REDUCED DUE TO INCREASED QT-INTERVAL)
     Route: 065
  6. QUINIDINE [Interacting]
     Active Substance: QUINIDINE
     Dosage: 5 MG/KG (TIME INTERVAL:)
     Route: 065
  7. PYRIDOXINE [Concomitant]
     Active Substance: PYRIDOXINE
     Indication: PARTIAL SEIZURES
     Dosage: 30 MG/KG, UNK
     Route: 048
  8. PHENOBARBITAL. [Interacting]
     Active Substance: PHENOBARBITAL
     Dosage: 5 MG/KG, 1X/DAY (LATER REDUCED TO 3 MG/KG)
     Route: 065
  9. PHENOBARBITAL. [Interacting]
     Active Substance: PHENOBARBITAL
     Dosage: 8 MG/KG, 1X/DAY
     Route: 065
  10. TOPIRAMATE. [Concomitant]
     Active Substance: TOPIRAMATE
     Indication: PARTIAL SEIZURES
     Dosage: 5 MG/KG, 1X/DAY
     Route: 065
  11. CLONAZEPAM. [Concomitant]
     Active Substance: CLONAZEPAM
     Indication: PARTIAL SEIZURES
     Dosage: 0.2 MG/KG, UNK
     Route: 048
  12. CARBAMAZEPINE. [Concomitant]
     Active Substance: CARBAMAZEPINE
     Indication: PARTIAL SEIZURES
     Dosage: UNK
     Route: 065
  13. QUINIDINE [Interacting]
     Active Substance: QUINIDINE
     Dosage: 2 MG/KG (INCREASED EVERY 2 TO 4 DAYS OF 4 TO 5 MG/KG (TARGET 60 MG/KG); TIME INTERVAL:)
     Route: 065
  14. MIDAZOLAM [Concomitant]
     Active Substance: MIDAZOLAM HYDROCHLORIDE
     Indication: PARTIAL SEIZURES
     Dosage: 0.2 MG/KG/HR
     Route: 050
  15. QUINIDINE [Interacting]
     Active Substance: QUINIDINE
     Dosage: 45 MG/KG, DAILY (CURRENTLY MAINTAINED ON 45 MG/KG IN 4 DIVIDED DOSES)
     Route: 065
  16. PHENOBARBITAL. [Interacting]
     Active Substance: PHENOBARBITAL
     Indication: PARTIAL SEIZURES
     Dosage: 3 MG/KG, 1X/DAY (INCREASED TO 8 MG/KG)
     Route: 065
  17. LEVETIRACETAM. [Interacting]
     Active Substance: LEVETIRACETAM
     Indication: PARTIAL SEIZURES
     Dosage: 60 MG/KG, 1X/DAY
     Route: 065

REACTIONS (4)
  - Electrocardiogram QT prolonged [Recovered/Resolved]
  - Atrioventricular block [Unknown]
  - Drug level decreased [Recovered/Resolved]
  - Drug interaction [Recovered/Resolved]
